FAERS Safety Report 13784283 (Version 1)
Quarter: 2017Q3

REPORT INFORMATION
  Report Type: Spontaneous
  Country: DK (occurrence: DK)
  Receive Date: 20170724
  Receipt Date: 20170724
  Transmission Date: 20171127
  Serious: Yes (Hospitalization)
  Sender: FDA-Public Use
  Company Number: PHHY2017DK105640

PATIENT
  Age: 64 Year
  Sex: Male

DRUGS (3)
  1. BUFOMIX [Concomitant]
     Indication: ASTHMA
     Route: 065
     Dates: start: 20170116
  2. BUVENTOL [Concomitant]
     Indication: ASTHMA
     Route: 065
     Dates: start: 20161220
  3. BIOCLAVID [Suspect]
     Active Substance: AMOXICILLIN\CLAVULANIC ACID
     Indication: PNEUMONIA
     Dosage: STYRKE: 500+125
     Route: 048
     Dates: start: 20170224, end: 20170310

REACTIONS (8)
  - Hepatotoxicity [Recovered/Resolved]
  - Pruritus generalised [Recovered/Resolved]
  - Faeces discoloured [Recovered/Resolved]
  - Decreased appetite [Recovered/Resolved]
  - Nausea [Recovered/Resolved]
  - Jaundice [Recovered/Resolved]
  - Dyspepsia [Recovered/Resolved]
  - Chromaturia [Recovered/Resolved]

NARRATIVE: CASE EVENT DATE: 20170306
